FAERS Safety Report 25956597 (Version 1)
Quarter: 2025Q4

REPORT INFORMATION
  Report Type: Spontaneous
  Country: US (occurrence: None)
  Receive Date: 20251024
  Receipt Date: 20251024
  Transmission Date: 20260117
  Serious: Yes (Other)
  Sender: ENDO
  Company Number: US-ENDO USA, INC.-2025-002184

PATIENT
  Sex: Male

DRUGS (4)
  1. EDEX [Suspect]
     Active Substance: ALPROSTADIL
     Indication: Product used for unknown indication
     Dosage: 10 MICROGRAM, UNKNOWN
  2. EDEX [Suspect]
     Active Substance: ALPROSTADIL
  3. EDEX [Suspect]
     Active Substance: ALPROSTADIL
  4. EDEX [Suspect]
     Active Substance: ALPROSTADIL

REACTIONS (3)
  - Diabetes mellitus [Not Recovered/Not Resolved]
  - Muscle twitching [Not Recovered/Not Resolved]
  - Nerve compression [Not Recovered/Not Resolved]
